FAERS Safety Report 15955278 (Version 3)
Quarter: 2019Q1

REPORT INFORMATION
  Report Type: Spontaneous
  Country: US (occurrence: US)
  Receive Date: 20190213
  Receipt Date: 20190320
  Transmission Date: 20190417
  Serious: Yes (Other)
  Sender: FDA-Public Use
  Company Number: US-BAYER-2019-030832

PATIENT
  Age: 38 Year
  Sex: Female

DRUGS (2)
  1. MIRENA [Suspect]
     Active Substance: LEVONORGESTREL
     Indication: CONTRACEPTION
     Dosage: 20 MCG/24HR, CONT
     Route: 015
     Dates: start: 20161116, end: 20190210
  2. MIRENA [Suspect]
     Active Substance: LEVONORGESTREL
     Indication: CONTRACEPTION

REACTIONS (5)
  - Uterine haemorrhage [None]
  - Device expulsion [Recovered/Resolved]
  - Abdominal pain lower [None]
  - Genital haemorrhage [Recovering/Resolving]
  - Gastric bypass [None]

NARRATIVE: CASE EVENT DATE: 20181121
